FAERS Safety Report 19807475 (Version 1)
Quarter: 2021Q3

REPORT INFORMATION
  Report Type: Spontaneous
  Country: DE (occurrence: DE)
  Receive Date: 20210908
  Receipt Date: 20210908
  Transmission Date: 20211014
  Serious: Yes (Hospitalization, Disabling, Other)
  Sender: FDA-Public Use
  Company Number: NVSC2021DE201744

PATIENT
  Sex: Male

DRUGS (2)
  1. CIPROFLOXACIN. [Suspect]
     Active Substance: CIPROFLOXACIN
     Indication: PRODUCT USED FOR UNKNOWN INDICATION
     Dosage: UNK
     Route: 065
     Dates: start: 2018
  2. LEVOFLOXACIN HEXAL [Suspect]
     Active Substance: LEVOFLOXACIN
     Indication: URINARY TRACT INFECTION
     Dosage: UNK
     Route: 065
     Dates: start: 201412

REACTIONS (9)
  - Tendon discomfort [Unknown]
  - Arrhythmia [Unknown]
  - Sarcoma [Recovered/Resolved with Sequelae]
  - General physical health deterioration [Recovering/Resolving]
  - Neoplasm malignant [Unknown]
  - Fracture of penis [Unknown]
  - Condition aggravated [Unknown]
  - Cardiac neoplasm malignant [Unknown]
  - Musculoskeletal discomfort [Unknown]
